FAERS Safety Report 5323055-9 (Version None)
Quarter: 2007Q2

REPORT INFORMATION
  Report Type: 
  Country: None (occurrence: None)
  Receive Date: 20070507
  Receipt Date: 20070420
  Transmission Date: 20071010
  Serious: Yes (Death)
  Sender: FDA-Public Use
  Company Number: 8023392

PATIENT
  Age: 23 Year
  Sex: Male

DRUGS (1)
  1. TUSSIONEX [Suspect]

REACTIONS (4)
  - ACCIDENTAL OVERDOSE [None]
  - BRAIN OEDEMA [None]
  - PULMONARY CONGESTION [None]
  - PULMONARY OEDEMA [None]
